FAERS Safety Report 7808150-4 (Version None)
Quarter: 2011Q4

REPORT INFORMATION
  Report Type: 
  Country: None (occurrence: None)
  Receive Date: 20111011
  Receipt Date: 20110927
  Transmission Date: 20120403
  Serious: Yes (Hospitalization)
  Sender: FDA-Public Use
  Company Number: BE-ROCHE-786940

PATIENT
  Sex: Female
  Weight: 56.75 kg

DRUGS (3)
  1. PEGINTERFERON ALFA-2A [Suspect]
     Indication: HEPATITIS C
     Route: 065
     Dates: start: 20110414, end: 20110609
  2. COPEGUS [Suspect]
     Indication: HEPATITIS C
     Route: 048
     Dates: start: 20110414, end: 20110615
  3. TELAPREVIR [Suspect]
     Indication: HEPATITIS C
     Route: 048
     Dates: start: 20110414, end: 20110622

REACTIONS (2)
  - VAGINAL HAEMORRHAGE [None]
  - PANCYTOPENIA [None]
